FAERS Safety Report 25907796 (Version 1)
Quarter: 2025Q4

REPORT INFORMATION
  Report Type: Spontaneous
  Country: JP (occurrence: JP)
  Receive Date: 20251010
  Receipt Date: 20251010
  Transmission Date: 20260118
  Serious: Yes (Life-Threatening, Other)
  Sender: BRISTOL-MYERS SQUIBB COMPANY
  Company Number: JP-BRISTOL-MYERS SQUIBB COMPANY-2025-136408

PATIENT
  Age: 83 Year
  Sex: Male
  Weight: 53.5 kg

DRUGS (11)
  1. YERVOY [Suspect]
     Active Substance: IPILIMUMAB
     Indication: Pleural mesothelioma malignant
     Dates: start: 20250502, end: 20250502
  2. OPDIVO [Suspect]
     Active Substance: NIVOLUMAB
     Indication: Pleural mesothelioma malignant
     Dates: start: 20250502, end: 20250502
  3. OPDIVO [Suspect]
     Active Substance: NIVOLUMAB
     Dates: start: 20250523, end: 20250523
  4. CALONAL [Concomitant]
     Active Substance: ACETAMINOPHEN
     Indication: Product used for unknown indication
  5. MIYA-BM [Concomitant]
     Active Substance: CLOSTRIDIUM BUTYRICUM SPORES STRAIN M-55
     Indication: Product used for unknown indication
  6. BISOPROLOL [Concomitant]
     Active Substance: BISOPROLOL
     Indication: Product used for unknown indication
  7. TAMSULOSIN [Concomitant]
     Active Substance: TAMSULOSIN
     Indication: Product used for unknown indication
  8. DUTASTERIDE AV [Concomitant]
     Indication: Product used for unknown indication
  9. CODEINE PHOSPHATE [Concomitant]
     Active Substance: CODEINE PHOSPHATE
     Indication: Product used for unknown indication
  10. TRAMADOL [Concomitant]
     Active Substance: TRAMADOL
     Indication: Product used for unknown indication
  11. MAGNESIUM OXIDE [Concomitant]
     Active Substance: MAGNESIUM OXIDE
     Indication: Product used for unknown indication

REACTIONS (6)
  - Type 1 diabetes mellitus [Recovering/Resolving]
  - Drug eruption [Recovered/Resolved]
  - Hyperkalaemia [Recovered/Resolved]
  - Oliguria [Unknown]
  - Blood creatinine increased [Recovering/Resolving]
  - Metabolic acidosis [Unknown]

NARRATIVE: CASE EVENT DATE: 20250509
